FAERS Safety Report 9193004 (Version 2)
Quarter: 2013Q2

REPORT INFORMATION
  Report Type: Spontaneous
  Country: US (occurrence: US)
  Receive Date: 20130327
  Receipt Date: 20130422
  Transmission Date: 20140414
  Serious: Yes (Hospitalization)
  Sender: FDA-Public Use
  Company Number: PHEH2013US006930

PATIENT
  Sex: Male

DRUGS (3)
  1. TASIGNA [Suspect]
     Dosage: 400 MG, BID
     Route: 048
  2. HYDROCODONE BITARTRATE AND IBUPROFEN [Concomitant]
     Dosage: 7.5/200 MG, 1 EVERY 6HRS
  3. ANDROGEL [Concomitant]
     Dosage: UNK UKN, UNK

REACTIONS (3)
  - Gastroenteritis viral [Unknown]
  - Incorrect storage of drug [Unknown]
  - Blood potassium decreased [Unknown]
